FAERS Safety Report 5529056-X (Version None)
Quarter: 2007Q4

REPORT INFORMATION
  Report Type: 
  Country: None (occurrence: None)
  Receive Date: 20071129
  Receipt Date: 20061009
  Transmission Date: 20080405
  Serious: No
  Sender: FDA-Public Use
  Company Number: A0622916A

PATIENT
  Sex: Male

DRUGS (2)
  1. BUPROPION HYDROCHLORIDE [Suspect]
     Indication: DEPRESSION
     Dosage: 200MG TWICE PER DAY
     Route: 048
  2. ZOLOFT [Concomitant]

REACTIONS (1)
  - DYSURIA [None]
